FAERS Safety Report 22789435 (Version 3)
Quarter: 2024Q1

REPORT INFORMATION
  Report Type: Spontaneous
  Country: US (occurrence: US)
  Receive Date: 20230804
  Receipt Date: 20240119
  Transmission Date: 20240409
  Serious: No
  Sender: FDA-Public Use
  Company Number: US-AMGEN-USASP2023135304

PATIENT
  Age: 34 Year
  Sex: Female

DRUGS (2)
  1. TAVNEOS [Suspect]
     Active Substance: AVACOPAN
     Indication: Anti-neutrophil cytoplasmic antibody positive vasculitis
     Dosage: 30 MILLIGRAM, BID TAKE 3 CAPSULES (30 MG) BY MOUTH TWICE DAILY WITH FOOD
     Route: 048
     Dates: start: 20230725, end: 20230801
  2. TAVNEOS [Suspect]
     Active Substance: AVACOPAN
     Dosage: 30 MILLIGRAM, BID (TAKE 3 CAPSULES BY MOUTH TWICE DAILY WITH FOOD)
     Route: 048

REACTIONS (4)
  - Ear pain [Unknown]
  - Constipation [Recovering/Resolving]
  - Hypertension [Unknown]
  - Headache [Recovering/Resolving]

NARRATIVE: CASE EVENT DATE: 20230701
